FAERS Safety Report 15091101 (Version 1)
Quarter: 2018Q2

REPORT INFORMATION
  Report Type: Spontaneous
  Country: US (occurrence: US)
  Receive Date: 20180629
  Receipt Date: 20180629
  Transmission Date: 20180711
  Serious: No
  Sender: FDA-Public Use
  Company Number: US-TEVA-2018-US-917985

PATIENT
  Sex: Female

DRUGS (1)
  1. FLUDROCORTISONE [Suspect]
     Active Substance: FLUDROCORTISONE
     Route: 065

REACTIONS (3)
  - Dizziness [Unknown]
  - Drug intolerance [Unknown]
  - Insomnia [Unknown]
